FAERS Safety Report 7071238-2 (Version None)
Quarter: 2010Q4

REPORT INFORMATION
  Report Type: 
  Country: None (occurrence: None)
  Receive Date: 20101029
  Receipt Date: 20101019
  Transmission Date: 20110411
  Serious: Yes (Death, Hospitalization, Other)
  Sender: FDA-Public Use
  Company Number: US-ACTELION-A-US2009-23768

PATIENT
  Sex: Female

DRUGS (2)
  1. BOSENTAN TABLET UNKNOWN US MG [Suspect]
     Indication: PULMONARY ARTERIAL HYPERTENSION
     Dosage: UNK
     Route: 048
     Dates: start: 20040716, end: 20091201
  2. ACETAMINOPHEN [Concomitant]

REACTIONS (5)
  - ABORTION INDUCED [None]
  - ANAEMIA [None]
  - CARDIOPULMONARY FAILURE [None]
  - PREGNANCY [None]
  - PREGNANCY TEST POSITIVE [None]
